FAERS Safety Report 21696957 (Version 4)
Quarter: 2023Q2

REPORT INFORMATION
  Report Type: Report from Study
  Country: DE (occurrence: DE)
  Receive Date: 20221208
  Receipt Date: 20230404
  Transmission Date: 20230722
  Serious: Yes (Other)
  Sender: FDA-Public Use
  Company Number: DE-002147023-NVSC2021DE248419

PATIENT
  Sex: Male
  Weight: 14 kg

DRUGS (4)
  1. DABRAFENIB [Suspect]
     Active Substance: DABRAFENIB
     Indication: Neuroblastoma
     Dosage: 5.2 MG/KG, QD
     Route: 048
     Dates: start: 20210519
  2. DABRAFENIB [Suspect]
     Active Substance: DABRAFENIB
     Dosage: 30 MG, QD
     Route: 048
     Dates: end: 20220210
  3. TRAMETINIB [Suspect]
     Active Substance: TRAMETINIB
     Indication: Neuroblastoma
     Dosage: 0.032 MG/KG, QD
     Route: 048
     Dates: start: 20210519
  4. TRAMETINIB [Suspect]
     Active Substance: TRAMETINIB
     Dosage: 0.25 MG, QD
     Route: 048
     Dates: end: 20220210

REACTIONS (3)
  - Diarrhoea [Unknown]
  - Neuroblastoma [Recovered/Resolved with Sequelae]
  - Malignant neoplasm progression [Recovered/Resolved with Sequelae]

NARRATIVE: CASE EVENT DATE: 20220120
